FAERS Safety Report 4873250-8 (Version None)
Quarter: 2005Q4

REPORT INFORMATION
  Report Type: 
  Country: None (occurrence: None)
  Receive Date: 20051201
  Receipt Date: 20050818
  Transmission Date: 20060501
  Serious: No
  Sender: FDA-Public Use
  Company Number: 2005PV001283

PATIENT
  Age: 77 Year
  Sex: Female
  Weight: 87.9978 kg

DRUGS (17)
  1. BYETTA [Suspect]
     Indication: DIABETES MELLITUS NON-INSULIN-DEPENDENT
     Dosage: 5 MCG; BID; SC; 10 MCG; BID; SC
     Route: 058
     Dates: start: 20050812, end: 20050825
  2. BYETTA [Suspect]
     Indication: DIABETES MELLITUS NON-INSULIN-DEPENDENT
     Dosage: 5 MCG; BID; SC; 10 MCG; BID; SC
     Route: 058
     Dates: start: 20050826
  3. ZETIA [Concomitant]
  4. TRIAVIL [Concomitant]
  5. FOLIC ACID [Concomitant]
  6. LASIX [Concomitant]
  7. ATENOLOL [Concomitant]
  8. LEVOTHYROXINE SODIUM [Concomitant]
  9. NEURONTIN [Concomitant]
  10. POTASSIUM [Concomitant]
  11. TRICOR [Concomitant]
  12. ISOSORBIDE MONONITRATE [Concomitant]
  13. NORVASC [Concomitant]
  14. REMICADE [Concomitant]
  15. METFORMIN [Concomitant]
  16. ACTOS [Concomitant]
  17. AMARYL [Concomitant]

REACTIONS (5)
  - BACK PAIN [None]
  - BLOOD GLUCOSE INCREASED [None]
  - DECREASED APPETITE [None]
  - NAUSEA [None]
  - WEIGHT DECREASED [None]
